FAERS Safety Report 10385550 (Version 2)
Quarter: 2014Q3

REPORT INFORMATION
  Report Type: Spontaneous
  Country: FR (occurrence: FR)
  Receive Date: 20140814
  Receipt Date: 20140814
  Transmission Date: 20150326
  Serious: Yes (Hospitalization)
  Sender: FDA-Public Use
  Company Number: FR-PFIZER INC-2014201118

PATIENT
  Age: 26 Year
  Sex: Female
  Weight: 53 kg

DRUGS (2)
  1. PREDNISOLONE. [Concomitant]
     Active Substance: PREDNISOLONE
     Indication: EAR INFECTION
     Dosage: UNK
     Dates: start: 20140616, end: 20140621
  2. CEFPODOXIME PROXETIL. [Suspect]
     Active Substance: CEFPODOXIME PROXETIL
     Indication: EAR INFECTION
     Dosage: 1 DF, 2X/DAY
     Route: 048
     Dates: start: 20140616, end: 20140621

REACTIONS (6)
  - Clostridium difficile infection [Recovering/Resolving]
  - Vomiting [Recovering/Resolving]
  - Gastrointestinal sounds abnormal [Recovering/Resolving]
  - Diarrhoea [Recovering/Resolving]
  - Abdominal pain [Recovering/Resolving]
  - Pyrexia [Recovering/Resolving]

NARRATIVE: CASE EVENT DATE: 20140620
